FAERS Safety Report 25924387 (Version 2)
Quarter: 2025Q4

REPORT INFORMATION
  Report Type: Spontaneous
  Country: US (occurrence: US)
  Receive Date: 20251015
  Receipt Date: 20251112
  Transmission Date: 20260117
  Serious: No
  Sender: PFIZER
  Company Number: US-PFIZER INC-202500200793

PATIENT
  Age: 35 Year
  Sex: Female

DRUGS (1)
  1. NIVESTYM [Suspect]
     Active Substance: FILGRASTIM-AAFI
     Dosage: 9 DOSES EVERY 21 DAYS
     Route: 058

REACTIONS (2)
  - Wrong technique in device usage process [Unknown]
  - Device safety feature issue [Unknown]
